FAERS Safety Report 16330357 (Version 1)
Quarter: 2019Q2

REPORT INFORMATION
  Report Type: Spontaneous
  Country: FR (occurrence: FR)
  Receive Date: 20190520
  Receipt Date: 20190520
  Transmission Date: 20190711
  Serious: Yes (Death)
  Sender: FDA-Public Use
  Company Number: FR-ACCORD-128136

PATIENT
  Age: 65 Year
  Sex: Female
  Weight: 92 kg

DRUGS (14)
  1. CYTARABINE ACCORD [Suspect]
     Active Substance: CYTARABINE
     Indication: BONE MARROW TRANSPLANT
     Route: 042
     Dates: start: 20190225, end: 20190301
  2. IMIPENEM CILASTATINE MYLAN [Suspect]
     Active Substance: IMIPENEM
     Indication: SEPTIC SHOCK
     Route: 042
     Dates: start: 20190302, end: 20190308
  3. CEFTAZIDIME MYLAN [Suspect]
     Active Substance: CEFTAZIDIME
     Indication: SEPTIC SHOCK
     Route: 042
     Dates: start: 20190301, end: 20190302
  4. CHIBRO CADRON [Suspect]
     Active Substance: DEXAMETHASONE SODIUM PHOSPHATE\NEOMYCIN SULFATE
     Indication: PRODUCT USED FOR UNKNOWN INDICATION
     Dosage: 1 DROP PER EYE
     Route: 047
     Dates: start: 20190225, end: 20190227
  5. EVOLTRA [Suspect]
     Active Substance: CLOFARABINE
     Indication: BONE MARROW TRANSPLANT
     Dosage: STRENGTH: 1 MG / ML
     Route: 042
     Dates: start: 20190225, end: 20190301
  6. VORICONAZOLE ARROW [Suspect]
     Active Substance: VORICONAZOLE
     Indication: ANTIBIOTIC PROPHYLAXIS
     Route: 042
     Dates: start: 20190226, end: 20190306
  7. LERCANIDIPINE ARROW [Suspect]
     Active Substance: LERCANIDIPINE
     Indication: HYPERTENSION
     Dosage: STRENGTH: 10 MG
     Route: 048
     Dates: end: 20190226
  8. STRESAM [Suspect]
     Active Substance: ETIFOXINE
     Indication: ANXIETY
     Route: 048
     Dates: end: 20190227
  9. ONDANSETRON ACCORD [Suspect]
     Active Substance: ONDANSETRON
     Indication: ANTIEMETIC SUPPORTIVE CARE
     Route: 042
     Dates: start: 20190226, end: 20190227
  10. LEVOTHYROXINE. [Suspect]
     Active Substance: LEVOTHYROXINE
     Indication: HYPOTHYROIDISM
     Route: 048
     Dates: end: 20190303
  11. EMEND [Suspect]
     Active Substance: APREPITANT
     Indication: ANTIEMETIC SUPPORTIVE CARE
     Dosage: 125MG D1 THEN 80MG
     Route: 048
     Dates: start: 20190225, end: 20190227
  12. VANCOMYCIN SANDOZ [Suspect]
     Active Substance: VANCOMYCIN
     Indication: PRODUCT USED FOR UNKNOWN INDICATION
     Route: 042
     Dates: start: 20190302, end: 20190303
  13. PROPOFOL LIPURO [Suspect]
     Active Substance: PROPOFOL
     Indication: INDUCTION OF ANAESTHESIA
     Route: 042
     Dates: start: 20190228, end: 20190228
  14. CEFTRIAXONE MYLAN [Suspect]
     Active Substance: CEFTRIAXONE
     Indication: UROSEPSIS
     Route: 042
     Dates: start: 20190227, end: 20190227

REACTIONS (4)
  - Septic shock [Fatal]
  - Toxic epidermal necrolysis [Fatal]
  - Bone marrow failure [Fatal]
  - Off label use [Unknown]

NARRATIVE: CASE EVENT DATE: 20190227
